FAERS Safety Report 24360383 (Version 2)
Quarter: 2025Q1

REPORT INFORMATION
  Report Type: Spontaneous
  Country: US (occurrence: US)
  Receive Date: 20240925
  Receipt Date: 20250103
  Transmission Date: 20250409
  Serious: No
  Sender: CASPER PHARMA
  Company Number: US-CASPERPHARMA-US-2024RISSPO00342

PATIENT
  Age: 21 Year
  Sex: Male

DRUGS (2)
  1. GLYCOPYRROLATE [Suspect]
     Active Substance: GLYCOPYRROLATE
     Indication: Asthenia
     Route: 048
  2. ALUMINUM CHLORIDE [Suspect]
     Active Substance: ALUMINUM CHLORIDE
     Indication: Asthenia
     Route: 061

REACTIONS (7)
  - Hyperhidrosis [Unknown]
  - Discomfort [Unknown]
  - Withdrawal syndrome [Unknown]
  - Condition aggravated [Unknown]
  - Social problem [Unknown]
  - Quality of life decreased [Unknown]
  - Drug ineffective [Unknown]
